FAERS Safety Report 10273388 (Version 8)
Quarter: 2018Q4

REPORT INFORMATION
  Report Type: Report from Study
  Country: DE (occurrence: DE)
  Receive Date: 20140702
  Receipt Date: 20181008
  Transmission Date: 20190204
  Serious: Yes (Other)
  Sender: FDA-Public Use
  Company Number: DE-INCYTE CORPORATION-2014IN001801

PATIENT

DRUGS (31)
  1. INCB018424 [Suspect]
     Active Substance: RUXOLITINIB
     Dosage: UNK
     Route: 065
     Dates: start: 20151208, end: 20160112
  2. INCB018424 [Suspect]
     Active Substance: RUXOLITINIB
     Dosage: 10 MG, QD
     Route: 048
     Dates: start: 20160113, end: 20160205
  3. TORASEMIDE [Concomitant]
     Active Substance: TORSEMIDE
     Indication: OEDEMA PERIPHERAL
     Dosage: 15 MG, QD
     Route: 065
     Dates: start: 201304, end: 20130725
  4. SPIRONOLACTONE. [Concomitant]
     Active Substance: SPIRONOLACTONE
     Indication: OEDEMA PERIPHERAL
     Dosage: 100 MG, QD
     Route: 065
     Dates: end: 20130725
  5. INCB018424 [Suspect]
     Active Substance: RUXOLITINIB
     Dosage: 10 MG, (2 DF OF 5 MG PER DAY)
     Route: 048
     Dates: start: 20140501, end: 20140502
  6. SPIRONOLACTONE. [Concomitant]
     Active Substance: SPIRONOLACTONE
     Dosage: 50 MG, QD
     Route: 065
     Dates: start: 20131203
  7. INCB018424 [Suspect]
     Active Substance: RUXOLITINIB
     Dosage: 20 MG, (4 DF OF 5 MG PER DAY)
     Route: 048
     Dates: start: 20131107, end: 20131118
  8. INCB018424 [Suspect]
     Active Substance: RUXOLITINIB
     Dosage: 30 MG, (2 DF OF 15 MG PER DAY)
     Route: 048
     Dates: start: 20131219, end: 20131223
  9. INCB018424 [Suspect]
     Active Substance: RUXOLITINIB
     Dosage: 10 MG, (2 DF OF 5 MG PER DAY)
     Route: 048
     Dates: start: 20140328, end: 20140411
  10. AMITRIPTYLINE [Concomitant]
     Active Substance: AMITRIPTYLINE
     Indication: BURNING SENSATION
     Dosage: 10 MG, QD
     Route: 065
     Dates: start: 20140621, end: 201408
  11. INCB018424 [Suspect]
     Active Substance: RUXOLITINIB
     Dosage: 30 MG, (2 DFOF 15 MG PER DAY)
     Route: 048
     Dates: start: 20140114, end: 20140328
  12. INCB018424 [Suspect]
     Active Substance: RUXOLITINIB
     Dosage: 20 MG, (4 DF OF 5 MG PER DAY)
     Route: 048
     Dates: start: 20140519, end: 20140731
  13. INCB018424 [Suspect]
     Active Substance: RUXOLITINIB
     Dosage: 10 MG, QD
     Route: 048
     Dates: start: 20141117, end: 20150126
  14. TORASEMIDE [Concomitant]
     Active Substance: TORSEMIDE
     Dosage: 10 MG, QD
     Route: 065
     Dates: start: 20131209
  15. AMITRIPTYLINE [Concomitant]
     Active Substance: AMITRIPTYLINE
     Dosage: 10 MG, QD
     Route: 065
     Dates: start: 20150716, end: 201509
  16. INCB018424 [Suspect]
     Active Substance: RUXOLITINIB
     Dosage: 15 MG (3 DF OF 5 MG), QD
     Route: 048
     Dates: start: 20150127, end: 20150408
  17. INCB018424 [Suspect]
     Active Substance: RUXOLITINIB
     Dosage: 10 MG, QD
     Route: 048
     Dates: start: 20150413, end: 20151207
  18. INCB018424 [Suspect]
     Active Substance: RUXOLITINIB
     Indication: MYELOFIBROSIS
     Dosage: 30 MG, (6 DF OF 5 MG PER DAY)
     Route: 048
     Dates: start: 20130720, end: 20130822
  19. INCB018424 [Suspect]
     Active Substance: RUXOLITINIB
     Dosage: 20 MG, (4 DF OF 5 MG PER DAY)
     Route: 048
     Dates: start: 20130911, end: 20131029
  20. INCB018424 [Suspect]
     Active Substance: RUXOLITINIB
     Dosage: 15 MG, (3 DF OF 5 MG PER DAY)
     Route: 048
     Dates: start: 20140412, end: 20140430
  21. AAS [Concomitant]
     Active Substance: ASPIRIN
     Dosage: 100 MG, UNK
     Dates: start: 200903
  22. INCB018424 [Suspect]
     Active Substance: RUXOLITINIB
     Dosage: 20 MG, (4 DF OF 5 MG PER DAY)
     Route: 048
     Dates: start: 20131130, end: 20131218
  23. INCB018424 [Suspect]
     Active Substance: RUXOLITINIB
     Dosage: 15 MG, (3 DF OF 5 MG PER DAY)
     Route: 048
     Dates: start: 20140503, end: 20140518
  24. TORASEMIDE [Concomitant]
     Active Substance: TORSEMIDE
     Dosage: 10 MG, QD
     Route: 065
     Dates: start: 20130726, end: 20130802
  25. AAS [Concomitant]
     Active Substance: ASPIRIN
     Indication: CEREBROVASCULAR ACCIDENT
     Dosage: 100 MG, QD
     Route: 065
     Dates: start: 20131031
  26. INCB018424 [Suspect]
     Active Substance: RUXOLITINIB
     Dosage: 10 MG, (2 DF OF 5 MG PER DAY)
     Route: 048
     Dates: start: 20130823, end: 20130827
  27. INCB018424 [Suspect]
     Active Substance: RUXOLITINIB
     Dosage: 20 MG, (4 DF OF 5 MG PER DAY)
     Route: 048
     Dates: start: 20131224, end: 20140113
  28. DUODART [Concomitant]
     Active Substance: DUTASTERIDE\TAMSULOSIN
     Indication: BENIGN PROSTATIC HYPERPLASIA
     Dosage: 0.5/0.4 MG, QD
     Route: 065
     Dates: start: 20130726, end: 2014
  29. SPIRONOLACTONE. [Concomitant]
     Active Substance: SPIRONOLACTONE
     Dosage: 50 MG, QD
     Route: 065
     Dates: start: 20130727, end: 20131119
  30. INCB018424 [Suspect]
     Active Substance: RUXOLITINIB
     Dosage: 10 MG, (2 DF OF 5 MG PER DAY)
     Route: 048
     Dates: start: 20130904, end: 20130910
  31. INCB018424 [Suspect]
     Active Substance: RUXOLITINIB
     Dosage: 20 MG, (4 DF OF 5 MG PER DAY)
     Route: 048
     Dates: start: 20131031, end: 20131103

REACTIONS (3)
  - Leukocytosis [Recovered/Resolved]
  - Dizziness [Unknown]
  - Leukocytosis [Not Recovered/Not Resolved]

NARRATIVE: CASE EVENT DATE: 20140516
